FAERS Safety Report 14421759 (Version 4)
Quarter: 2018Q1

REPORT INFORMATION
  Report Type: Report from Study
  Country: None (occurrence: CA)
  Receive Date: 20180122
  Receipt Date: 20180209
  Transmission Date: 20180509
  Serious: Yes (Hospitalization, Other)
  Sender: FDA-Public Use
  Company Number: CA-ABBVIE-18S-028-2225049-00

PATIENT
  Age: 36 Year
  Sex: Female

DRUGS (3)
  1. NORLUTATE [Concomitant]
     Active Substance: NORETHINDRONE ACETATE
     Indication: PRODUCT USED FOR UNKNOWN INDICATION
  2. CIPRALEX [Concomitant]
     Active Substance: ESCITALOPRAM OXALATE
     Indication: PRODUCT USED FOR UNKNOWN INDICATION
  3. LUPRON DEPOT [Suspect]
     Active Substance: LEUPROLIDE ACETATE
     Indication: UTERINE LEIOMYOMA
     Route: 030
     Dates: start: 20171124, end: 20171124

REACTIONS (4)
  - Emotional distress [Unknown]
  - Uterine leiomyoma [Not Recovered/Not Resolved]
  - Lymphadenitis [Recovering/Resolving]
  - Pelvic pain [Recovering/Resolving]

NARRATIVE: CASE EVENT DATE: 20171126
